FAERS Safety Report 17827057 (Version 1)
Quarter: 2020Q2

REPORT INFORMATION
  Report Type: Report from Study
  Country: US (occurrence: US)
  Receive Date: 20200526
  Receipt Date: 20200526
  Transmission Date: 20200714
  Serious: No
  Sender: FDA-Public Use
  Company Number: NVSC2020US142980

PATIENT
  Sex: Female

DRUGS (1)
  1. GILENYA [Suspect]
     Active Substance: FINGOLIMOD HYDROCHLORIDE
     Indication: RELAPSING-REMITTING MULTIPLE SCLEROSIS
     Dosage: 0.5 MG, QD
     Route: 048
     Dates: start: 20180727

REACTIONS (7)
  - Solar lentigo [Unknown]
  - Liver function test abnormal [Unknown]
  - Paraesthesia [Unknown]
  - Pain in extremity [Unknown]
  - Asthenia [Unknown]
  - Photosensitivity reaction [Unknown]
  - Headache [Unknown]
